FAERS Safety Report 18789087 (Version 2)
Quarter: 2021Q1

REPORT INFORMATION
  Report Type: Spontaneous
  Country: RU (occurrence: RU)
  Receive Date: 20210126
  Receipt Date: 20210210
  Transmission Date: 20210419
  Serious: Yes (Death)
  Sender: FDA-Public Use
  Company Number: RU-UCBSA-2021002444

PATIENT
  Age: 38 Year
  Sex: Female

DRUGS (18)
  1. TOPAMAX [Suspect]
     Active Substance: TOPIRAMATE
     Dosage: 50 MG IN THE MORNING, 75 MG IN THE EVENING
  2. VITAMIN D [VITAMIN D NOS] [Concomitant]
     Active Substance: VITAMIN D NOS
     Indication: PRODUCT USED FOR UNKNOWN INDICATION
     Dosage: 2000 IU INTERNATIONAL UNITS DAILY
  3. TOPAMAX [Suspect]
     Active Substance: TOPIRAMATE
     Dosage: GRADUAL DOSE INCREASED
  4. TOPAMAX [Suspect]
     Active Substance: TOPIRAMATE
     Dosage: 125 MG DAILY
  5. DEPAKINE [VALPROATE SODIUM] [Concomitant]
     Active Substance: VALPROATE SODIUM
     Dosage: REDUCED DOSE
  6. KEPPRA [Suspect]
     Active Substance: LEVETIRACETAM
     Dosage: 500 MILLIGRAM, 2X/DAY (BID)
     Dates: start: 2020, end: 20210111
  7. KEPPRA [Suspect]
     Active Substance: LEVETIRACETAM
     Indication: EPILEPSY
     Dosage: 0.5 DOSAGE FORM (STRENGTH: 500MG), ONCE DAILY (QD)
     Dates: start: 202009, end: 2020
  8. KEPPRA [Suspect]
     Active Substance: LEVETIRACETAM
     Dosage: 0.5 DOSAGE FORM (STRENGTH: 500MG), 2X/DAY (BID)
     Dates: start: 2020, end: 2020
  9. KEPPRA [Suspect]
     Active Substance: LEVETIRACETAM
     Dosage: 0.5 TABLET IN MORNING AND 1 IN EVENING (STRENGTH: 500MG), 2X/DAY (BID)
     Dates: start: 2020, end: 2020
  10. TOPAMAX [Suspect]
     Active Substance: TOPIRAMATE
     Dosage: 175 MG
  11. TOPAMAX [Suspect]
     Active Substance: TOPIRAMATE
     Dosage: 75 MILLIGRAM, 2X/DAY (BID)
  12. TOPAMAX [Suspect]
     Active Substance: TOPIRAMATE
     Dosage: 150 MG DAILY
     Dates: start: 20200810, end: 2020
  13. TOPAMAX [Suspect]
     Active Substance: TOPIRAMATE
     Dosage: 25 MG IN THE MORNING, 50 MG IN THE EVENING
  14. TOPAMAX [Suspect]
     Active Substance: TOPIRAMATE
     Dosage: 25 MILLIGRAM, 2X/DAY (BID)
  15. DEPAKINE [VALPROATE SODIUM] [Concomitant]
     Active Substance: VALPROATE SODIUM
     Indication: PRODUCT USED FOR UNKNOWN INDICATION
     Dosage: UNK
  16. TOPAMAX [Suspect]
     Active Substance: TOPIRAMATE
     Indication: SEIZURE
     Dosage: 50 MG DAILY
     Dates: start: 2007
  17. TOPAMAX [Suspect]
     Active Substance: TOPIRAMATE
     Dosage: 50 MILLIGRAM, 2X/DAY (BID)
  18. TOPAMAX [Suspect]
     Active Substance: TOPIRAMATE
     Dosage: 25 MILLIGRAM, ONCE DAILY (QD)
     Dates: end: 202101

REACTIONS (6)
  - Cardiac failure acute [Fatal]
  - Tremor [Unknown]
  - Peripheral swelling [Unknown]
  - Somnolence [Unknown]
  - Product prescribing issue [Unknown]
  - Visual impairment [Unknown]

NARRATIVE: CASE EVENT DATE: 2020
